FAERS Safety Report 14551966 (Version 2)
Quarter: 2019Q2

REPORT INFORMATION
  Report Type: Spontaneous
  Country: US (occurrence: US)
  Receive Date: 20180220
  Receipt Date: 20190424
  Transmission Date: 20190711
  Serious: No
  Sender: FDA-Public Use
  Company Number: US-PFIZER INC-2018071065

PATIENT
  Age: 63 Year
  Sex: Male
  Weight: 104.3 kg

DRUGS (1)
  1. GABAPENTIN. [Suspect]
     Active Substance: GABAPENTIN
     Dosage: 2700 MG, 3X/DAY

REACTIONS (3)
  - Prescribed overdose [Unknown]
  - Somnolence [Unknown]
  - Drug ineffective [Unknown]
